FAERS Safety Report 7231228-3 (Version None)
Quarter: 2011Q1

REPORT INFORMATION
  Report Type: 
  Country: None (occurrence: None)
  Receive Date: 20110118
  Receipt Date: 20110112
  Transmission Date: 20110831
  Serious: Yes (Other)
  Sender: FDA-Public Use
  Company Number: B0692516A

PATIENT
  Sex: Female

DRUGS (1)
  1. AUGMENTIN [Suspect]
     Route: 048
     Dates: start: 20101229, end: 20101229

REACTIONS (5)
  - ERYTHEMA [None]
  - DRUG ADMINISTRATION ERROR [None]
  - ANAPHYLACTOID REACTION [None]
  - BRONCHOSPASM [None]
  - HYPOTENSION [None]
